FAERS Safety Report 5454695-4 (Version None)
Quarter: 2007Q3

REPORT INFORMATION
  Report Type: 
  Country: None (occurrence: None)
  Receive Date: 20070917
  Receipt Date: 20061018
  Transmission Date: 20080115
  Serious: Yes (Hospitalization, Disabling, Other)
  Sender: FDA-Public Use
  Company Number: US-ASTRAZENECA-2006UW18532

PATIENT
  Age: 14491 Day
  Sex: Male

DRUGS (7)
  1. SEROQUEL [Suspect]
     Indication: AFFECTIVE DISORDER
     Route: 048
     Dates: start: 19980722, end: 20050601
  2. SEROQUEL [Suspect]
     Indication: ANXIETY
     Route: 048
     Dates: start: 19980722, end: 20050601
  3. SEROQUEL [Suspect]
     Indication: SLEEP DISORDER
     Route: 048
     Dates: start: 19980722, end: 20050601
  4. DEPAKOTE ER [Concomitant]
     Indication: AFFECTIVE DISORDER
     Dates: start: 20040303
  5. CYMBALTA [Concomitant]
     Indication: DEPRESSION
     Route: 048
     Dates: start: 20041013
  6. ZYPREXA [Concomitant]
     Route: 048
  7. AMBIEN [Concomitant]
     Route: 048

REACTIONS (1)
  - DYSPHAGIA [None]
